FAERS Safety Report 8362042-3 (Version None)
Quarter: 2012Q2

REPORT INFORMATION
  Report Type: 
  Country: None (occurrence: None)
  Receive Date: 20120515
  Receipt Date: 20120511
  Transmission Date: 20120825
  Serious: Yes (Other)
  Sender: FDA-Public Use
  Company Number: BR-ALLERGAN-1206775US

PATIENT
  Age: 50 Year
  Sex: Female
  Weight: 60 kg

DRUGS (1)
  1. BOTULINUM TOXIN TYPE A [Suspect]
     Indication: STRABISMUS
     Dosage: 5 UNITS, SINGLE
     Route: 030
     Dates: start: 20120507, end: 20120507

REACTIONS (3)
  - ENDOPHTHALMITIS [None]
  - EYE PAIN [None]
  - VISUAL ACUITY REDUCED [None]
